FAERS Safety Report 24826882 (Version 2)
Quarter: 2025Q1

REPORT INFORMATION
  Report Type: Report from Study
  Country: CA (occurrence: CA)
  Receive Date: 20250109
  Receipt Date: 20250114
  Transmission Date: 20250408
  Serious: Yes (Other)
  Sender: ALEXION PHARMACEUTICALS
  Company Number: CA-AstraZeneca-CH-00780895A

PATIENT

DRUGS (14)
  1. BENRALIZUMAB [Suspect]
     Active Substance: BENRALIZUMAB
     Indication: Asthma
  2. BENRALIZUMAB [Suspect]
     Active Substance: BENRALIZUMAB
     Route: 058
  3. BENRALIZUMAB [Suspect]
     Active Substance: BENRALIZUMAB
  4. BENRALIZUMAB [Suspect]
     Active Substance: BENRALIZUMAB
     Route: 058
  5. ALVESCO [Concomitant]
     Active Substance: CICLESONIDE
     Route: 065
  6. ALVESCO [Concomitant]
     Active Substance: CICLESONIDE
     Route: 065
  7. SPIRIVA RESPIMAT [Concomitant]
     Active Substance: TIOTROPIUM BROMIDE
     Route: 065
  8. SPIRIVA RESPIMAT [Concomitant]
     Active Substance: TIOTROPIUM BROMIDE
     Route: 065
  9. VENTOLIN [Concomitant]
     Active Substance: ALBUTEROL SULFATE
     Route: 065
  10. VENTOLIN [Concomitant]
     Active Substance: ALBUTEROL SULFATE
     Route: 065
  11. XOLAIR [Concomitant]
     Active Substance: OMALIZUMAB
     Route: 065
  12. XOLAIR [Concomitant]
     Active Substance: OMALIZUMAB
     Route: 065
  13. ZENHALE [Concomitant]
     Active Substance: FORMOTEROL FUMARATE\MOMETASONE FUROATE
     Route: 065
  14. ZENHALE [Concomitant]
     Active Substance: FORMOTEROL FUMARATE\MOMETASONE FUROATE
     Route: 065

REACTIONS (3)
  - Pneumonia [Unknown]
  - Dyspnoea [Unknown]
  - Breath sounds abnormal [Unknown]
